FAERS Safety Report 23170672 (Version 2)
Quarter: 2024Q2

REPORT INFORMATION
  Report Type: Spontaneous
  Country: US (occurrence: US)
  Receive Date: 20231110
  Receipt Date: 20240521
  Transmission Date: 20240716
  Serious: No
  Sender: FDA-Public Use
  Company Number: US-BRISTOL-MYERS SQUIBB COMPANY-2023-161393

PATIENT
  Age: 54 Year
  Sex: Female

DRUGS (2)
  1. ZEPOSIA [Suspect]
     Active Substance: OZANIMOD HYDROCHLORIDE
     Indication: Colitis ulcerative
     Route: 048
     Dates: start: 202209
  2. ZEPOSIA [Suspect]
     Active Substance: OZANIMOD HYDROCHLORIDE
     Route: 048

REACTIONS (4)
  - Colitis ulcerative [Unknown]
  - Abdominal distension [Unknown]
  - Diarrhoea [Unknown]
  - Fatigue [Unknown]
